FAERS Safety Report 20941876 (Version 1)
Quarter: 2022Q2

REPORT INFORMATION
  Report Type: Spontaneous
  Country: US (occurrence: US)
  Receive Date: 20220610
  Receipt Date: 20220610
  Transmission Date: 20220720
  Serious: No
  Sender: FDA-Public Use
  Company Number: US-TEVA-2022-US-2039076

PATIENT
  Age: 56 Year
  Sex: Female

DRUGS (1)
  1. CINQAIR [Suspect]
     Active Substance: RESLIZUMAB
     Indication: Asthma
     Dosage: STRENGTH: 100 MG/10ML, EVERY 4 WEEKS
     Route: 042
     Dates: start: 20220421, end: 20220421

REACTIONS (2)
  - Weight decreased [Unknown]
  - Asthma [Unknown]

NARRATIVE: CASE EVENT DATE: 20220421
